FAERS Safety Report 16542122 (Version 5)
Quarter: 2019Q4

REPORT INFORMATION
  Report Type: Report from Study
  Country: US (occurrence: US)
  Receive Date: 20190708
  Receipt Date: 20191223
  Transmission Date: 20200122
  Serious: Yes (Other)
  Sender: FDA-Public Use
  Company Number: PHHY2019US153809

PATIENT
  Age: 12 Year
  Sex: Male

DRUGS (4)
  1. KYMRIAH [Suspect]
     Active Substance: TISAGENLECLEUCEL
     Indication: B-CELL TYPE ACUTE LEUKAEMIA
     Dosage: UNK UNK, ONCE/SINGLE
     Route: 041
     Dates: start: 2018
  2. KYMRIAH [Suspect]
     Active Substance: TISAGENLECLEUCEL
     Dosage: UNK UNK, ONCE/SINGLE
     Route: 041
     Dates: start: 2019
  3. FLUDARABINE [Concomitant]
     Active Substance: FLUDARABINE PHOSPHATE
     Indication: CHEMOTHERAPY
     Route: 065
  4. CYCLOPHOSPHAMIDE. [Concomitant]
     Active Substance: CYCLOPHOSPHAMIDE
     Indication: CHEMOTHERAPY
     Route: 065

REACTIONS (11)
  - Lymphocyte count decreased [Unknown]
  - Headache [Unknown]
  - Haemoglobin decreased [Recovered/Resolved]
  - Neurotoxicity [Recovered/Resolved]
  - Platelet count decreased [Unknown]
  - Haematocrit decreased [Recovered/Resolved]
  - Enterobacter infection [Unknown]
  - Dizziness [Unknown]
  - Neutrophil count decreased [Recovered/Resolved]
  - Nausea [Unknown]
  - White blood cell count decreased [Recovered/Resolved]
